FAERS Safety Report 7914450-X (Version None)
Quarter: 2011Q4

REPORT INFORMATION
  Report Type: 
  Country: None (occurrence: None)
  Receive Date: 20111115
  Receipt Date: 20111109
  Transmission Date: 20120403
  Serious: Yes (Other)
  Sender: FDA-Public Use
  Company Number: US-B.I. PHARMACEUTICALS,INC./RIDGEFIELD-2011-BP-23868BP

PATIENT
  Age: 60 Year
  Sex: Male
  Weight: 110.9 kg

DRUGS (7)
  1. GLUCOPHAGE [Concomitant]
     Dosage: 1000 MG
  2. FUROSEMIDE [Concomitant]
     Dosage: 80 MG
  3. ATORVASTATIN [Concomitant]
     Dosage: 40 MG
  4. LISINOPRIL [Concomitant]
     Dosage: 2.5 MG
  5. PRADAXA [Suspect]
     Indication: ATRIAL FLUTTER
  6. CARVEDILOL [Concomitant]
     Dosage: 6.25 MG
  7. PRADAXA [Suspect]
     Indication: CEREBROVASCULAR ACCIDENT PROPHYLAXIS
     Dosage: 300 MG
     Dates: start: 20110902, end: 20110905

REACTIONS (1)
  - SUICIDAL IDEATION [None]
